FAERS Safety Report 20767291 (Version 2)
Quarter: 2022Q2

REPORT INFORMATION
  Report Type: Spontaneous
  Country: IT (occurrence: IT)
  Receive Date: 20220429
  Receipt Date: 20220502
  Transmission Date: 20220720
  Serious: Yes (Hospitalization)
  Sender: FDA-Public Use
  Company Number: None

PATIENT
  Age: 70 Year
  Sex: Male
  Weight: 75 kg

DRUGS (4)
  1. VELCADE [Suspect]
     Active Substance: BORTEZOMIB
     Indication: Plasma cell myeloma
     Dosage: 2.2 MILLIGRAM, 1/WEEK
     Route: 058
     Dates: start: 20220412, end: 20220412
  2. THALIDOMIDE [Suspect]
     Active Substance: THALIDOMIDE
     Indication: Plasma cell myeloma
     Dosage: 100 MILLIGRAM, QD
     Route: 048
     Dates: start: 20220404, end: 20220414
  3. DARZALEX [Concomitant]
     Active Substance: DARATUMUMAB
     Indication: Plasma cell myeloma
     Dosage: 1000 MILLIGRAM, 1/WEEK
     Route: 042
     Dates: start: 20220412, end: 20220412
  4. SOTROVIMAB [Concomitant]
     Active Substance: SOTROVIMAB
     Indication: COVID-19
     Dosage: 500 MILLIGRAM
     Route: 042
     Dates: start: 20220330, end: 20220330

REACTIONS (3)
  - Epilepsy [Recovered/Resolved with Sequelae]
  - Bladder sphincter atony [Recovered/Resolved with Sequelae]
  - Bite [Recovered/Resolved with Sequelae]

NARRATIVE: CASE EVENT DATE: 20220412
